FAERS Safety Report 7759300-X (Version None)
Quarter: 2011Q3

REPORT INFORMATION
  Report Type: 
  Country: None (occurrence: None)
  Receive Date: 20110915
  Receipt Date: 20110907
  Transmission Date: 20111222
  Serious: Yes (Life-Threatening, Other)
  Sender: FDA-Public Use
  Company Number: OSCN-NO-1107L-0163

PATIENT
  Age: 61 Year
  Sex: Female

DRUGS (4)
  1. ADRIAMYCIN PFS [Concomitant]
  2. OMNISCAN [Suspect]
     Indication: HEADACHE
     Dosage: 30 ML, SINGLE DOSE
     Dates: start: 20070101, end: 20070101
  3. VINCRISTINE [Concomitant]
  4. DEXAMETHASONE [Concomitant]

REACTIONS (5)
  - MUSCULAR WEAKNESS [None]
  - NEPHROGENIC SYSTEMIC FIBROSIS [None]
  - RENAL IMPAIRMENT [None]
  - DYSURIA [None]
  - PNEUMONIA [None]
